FAERS Safety Report 18709133 (Version 1)
Quarter: 2021Q1

REPORT INFORMATION
  Report Type: Spontaneous
  Country: US (occurrence: US)
  Receive Date: 20210107
  Receipt Date: 20210107
  Transmission Date: 20210419
  Serious: Yes (Other)
  Sender: FDA-Public Use
  Company Number: US-ASTRAZENECA-2021A000656

PATIENT
  Sex: Female
  Weight: 68 kg

DRUGS (10)
  1. BIOTIN [Concomitant]
     Active Substance: BIOTIN
     Route: 065
  2. FASLODEX [Suspect]
     Active Substance: FULVESTRANT
     Dosage: 250 MG/5ML
     Route: 030
  3. PERCOCET [Concomitant]
     Active Substance: ACETAMINOPHEN\OXYCODONE HYDROCHLORIDE
     Dosage: 10/325 MG
     Route: 065
  4. AMITRIPTYLINE HCL [Concomitant]
     Active Substance: AMITRIPTYLINE
     Route: 065
  5. CYMBALTA [Concomitant]
     Active Substance: DULOXETINE HYDROCHLORIDE
     Route: 065
  6. IBRANCE [Suspect]
     Active Substance: PALBOCICLIB
     Indication: BREAST CANCER FEMALE
     Dosage: 125 MG 1 DAILY FOR 21 DAYS
     Route: 048
     Dates: start: 20201110
  7. MELOXICAM. [Concomitant]
     Active Substance: MELOXICAM
     Route: 065
  8. SPIRONOLACTONE. [Concomitant]
     Active Substance: SPIRONOLACTONE
     Route: 065
  9. CALCIUM D3 [Concomitant]
     Active Substance: CALCIUM\CHOLECALCIFEROL
     Dosage: 1000/800 MG
     Route: 065
  10. ZOFRAN [Concomitant]
     Active Substance: ONDANSETRON HYDROCHLORIDE
     Route: 065

REACTIONS (1)
  - Blood count abnormal [Recovering/Resolving]
